FAERS Safety Report 4646137-3 (Version None)
Quarter: 2005Q2

REPORT INFORMATION
  Report Type: 
  Country: None (occurrence: None)
  Receive Date: 20050427
  Receipt Date: 20040614
  Transmission Date: 20051028
  Serious: Yes (Hospitalization)
  Sender: FDA-Public Use
  Company Number: US-GLAXOSMITHKLINE-A0514522A

PATIENT
  Age: 50 Year
  Sex: Male

DRUGS (1)
  1. ZOFRAN [Suspect]
     Dosage: 8MG THREE TIMES PER DAY
     Route: 048

REACTIONS (1)
  - DRUG INEFFECTIVE [None]
